FAERS Safety Report 17016860 (Version 1)
Quarter: 2019Q4

REPORT INFORMATION
  Report Type: Spontaneous
  Country: US (occurrence: US)
  Receive Date: 20191004
  Receipt Date: 20191004
  Transmission Date: 20200122
  Serious: Yes (Other)
  Sender: FDA-Public Use
  Company Number: None

PATIENT
  Age: 63 Year
  Sex: Female
  Weight: 58.97 kg

DRUGS (5)
  1. AIMOVIG [Suspect]
     Active Substance: ERENUMAB-AOOE
     Indication: MIGRAINE PROPHYLAXIS
     Dosage: ?          QUANTITY:2 DF DOSAGE FORM;OTHER ROUTE:INJECTION?
     Dates: start: 20181015, end: 20190515
  2. MINOXIDIL. [Concomitant]
     Active Substance: MINOXIDIL
  3. LASER CAP (CAPULUS) [Concomitant]
  4. HAIR CLUB SHAMPOO + CONDITIONER AND SCALP CLEANSER [Concomitant]
  5. VITAMINS WITH BIOTIN + VIT D [Concomitant]

REACTIONS (1)
  - Alopecia [None]

NARRATIVE: CASE EVENT DATE: 20190115
